FAERS Safety Report 17001986 (Version 1)
Quarter: 2019Q4

REPORT INFORMATION
  Report Type: Spontaneous
  Country: CR (occurrence: CR)
  Receive Date: 20191106
  Receipt Date: 20191106
  Transmission Date: 20200122
  Serious: Yes (Other)
  Sender: FDA-Public Use
  Company Number: CR-ALLERGAN-1944269US

PATIENT

DRUGS (1)
  1. ACULAR LS [Suspect]
     Active Substance: KETOROLAC TROMETHAMINE
     Indication: PROPHYLAXIS
     Route: 047

REACTIONS (1)
  - Cystoid macular oedema [Unknown]
